FAERS Safety Report 6092677-2 (Version None)
Quarter: 2009Q1

REPORT INFORMATION
  Report Type: 
  Country: None (occurrence: None)
  Receive Date: 20090223
  Receipt Date: 20090223
  Transmission Date: 20090719
  Serious: Yes (Life-Threatening, Hospitalization)
  Sender: FDA-Public Use
  Company Number: None

PATIENT
  Sex: Male
  Weight: 117 kg

DRUGS (1)
  1. CIALIS [Suspect]
     Indication: ERECTILE DYSFUNCTION
     Dosage: 20MG Q PO 1/22, 1/30, + 2/13
     Route: 048
     Dates: start: 20090122, end: 20090214

REACTIONS (9)
  - ABNORMAL BEHAVIOUR [None]
  - APHASIA [None]
  - CONFUSIONAL STATE [None]
  - DYSPHAGIA [None]
  - HEMIPLEGIA [None]
  - LACK OF SPONTANEOUS SPEECH [None]
  - PSYCHOMOTOR HYPERACTIVITY [None]
  - SHOCK [None]
  - THIRST [None]
